FAERS Safety Report 5194211-8 (Version None)
Quarter: 2006Q4

REPORT INFORMATION
  Report Type: 
  Country: None (occurrence: None)
  Receive Date: 20061228
  Receipt Date: 20061120
  Transmission Date: 20070319
  Serious: Yes (Other)
  Sender: FDA-Public Use
  Company Number: US-PFIZER INC-2006144191

PATIENT
  Sex: Female
  Weight: 46.7 kg

DRUGS (5)
  1. CHANTIX [Suspect]
  2. LACTULOSE [Concomitant]
  3. CITRUCEL [Concomitant]
  4. NEXIUM [Concomitant]
  5. PRENATAL VITAMINS [Concomitant]

REACTIONS (9)
  - ABDOMINAL PAIN UPPER [None]
  - AGEUSIA [None]
  - ANOSMIA [None]
  - CONSTIPATION [None]
  - DIZZINESS [None]
  - IRRITABILITY [None]
  - MALAISE [None]
  - NAUSEA [None]
  - PAIN [None]
